FAERS Safety Report 4311374-4 (Version None)
Quarter: 2004Q1

REPORT INFORMATION
  Report Type: 
  Country: None (occurrence: None)
  Receive Date: 20040302
  Receipt Date: 20040302
  Transmission Date: 20041129
  Serious: Yes (Life-Threatening)
  Sender: FDA-Public Use
  Company Number: None

PATIENT
  Sex: Female
  Weight: 66.2252 kg

DRUGS (1)
  1. IBUPROFEN [Suspect]
     Indication: PLANTAR FASCIITIS
     Dosage: 1 TABELE TID
     Dates: start: 20040218, end: 20040224

REACTIONS (7)
  - AGITATION [None]
  - DYSPNOEA [None]
  - GASTROINTESTINAL PAIN [None]
  - HEART RATE INCREASED [None]
  - HYPERSENSITIVITY [None]
  - PRURITUS [None]
  - URTICARIA [None]
